FAERS Safety Report 7578133-0 (Version None)
Quarter: 2011Q2

REPORT INFORMATION
  Report Type: 
  Country: None (occurrence: None)
  Receive Date: 20110628
  Receipt Date: 20110607
  Transmission Date: 20111010
  Serious: Yes (Hospitalization)
  Sender: FDA-Public Use
  Company Number: A0870679A

PATIENT
  Age: 70 Year
  Sex: Male

DRUGS (2)
  1. AVANDAMET [Suspect]
     Route: 048
     Dates: start: 20040101, end: 20050101
  2. AVANDIA [Suspect]
     Route: 048
     Dates: start: 19991001

REACTIONS (3)
  - ANGINA UNSTABLE [None]
  - MYOCARDIAL INFARCTION [None]
  - CORONARY ARTERY DISEASE [None]
